FAERS Safety Report 7867454-X (Version None)
Quarter: 2011Q4

REPORT INFORMATION
  Report Type: 
  Country: None (occurrence: None)
  Receive Date: 20111028
  Receipt Date: 20111026
  Transmission Date: 20120403
  Serious: Yes (Other)
  Sender: FDA-Public Use
  Company Number: US-SANOFI-AVENTIS-2011SA070449

PATIENT
  Sex: Male

DRUGS (2)
  1. HUMALOG [Suspect]
     Route: 065
  2. LANTUS [Suspect]
     Route: 058

REACTIONS (2)
  - HYPOGLYCAEMIA [None]
  - TESTICULAR CANCER METASTATIC [None]
